FAERS Safety Report 7775765-1 (Version None)
Quarter: 2011Q3

REPORT INFORMATION
  Report Type: 
  Country: None (occurrence: None)
  Receive Date: 20110921
  Receipt Date: 20110707
  Transmission Date: 20111222
  Serious: Yes (Hospitalization)
  Sender: FDA-Public Use
  Company Number: UTC-007592

PATIENT
  Age: 48 Year
  Sex: Female

DRUGS (4)
  1. COUMADIN [Concomitant]
  2. TYVASO [Suspect]
     Indication: PULMONARY HYPERTENSION
     Dosage: 36-54 MICROGRAMS (36-54 MCGS), INHALATION
     Route: 055
     Dates: start: 20110111
  3. DIURETICS (DIURETICS) [Concomitant]
  4. ADCIRCA [Concomitant]

REACTIONS (2)
  - OEDEMA PERIPHERAL [None]
  - PULMONARY ARTERIAL HYPERTENSION [None]
